FAERS Safety Report 4828344-X (Version None)
Quarter: 2005Q4

REPORT INFORMATION
  Report Type: 
  Country: None (occurrence: None)
  Receive Date: 20051115
  Receipt Date: 20050426
  Transmission Date: 20060501
  Serious: Yes (Death)
  Sender: FDA-Public Use
  Company Number: CH-BRISTOL-MYERS SQUIBB COMPANY-12949715

PATIENT
  Age: 76 Year
  Sex: Male

DRUGS (5)
  1. DAPOTUM [Suspect]
     Dosage: DOSE VALUE:  4 TO 8 MG/D
     Route: 048
     Dates: start: 19950921, end: 20040405
  2. DAFALGAN [Suspect]
     Dosage: DOSE VALUE:  500-1000 MG/D
     Route: 048
     Dates: start: 20010731, end: 20040405
  3. PANTOZOL [Suspect]
     Route: 048
     Dates: start: 20030323, end: 20040405
  4. ZYRTEC [Suspect]
     Route: 048
     Dates: start: 20040229, end: 20040405
  5. CETIRIZINE HCL [Concomitant]
     Dates: start: 20040219

REACTIONS (1)
  - ASPIRATION [None]
